FAERS Safety Report 4751273-7 (Version None)
Quarter: 2005Q3

REPORT INFORMATION
  Report Type: 
  Country: None (occurrence: None)
  Receive Date: 20050822
  Receipt Date: 20050811
  Transmission Date: 20060218
  Serious: No
  Sender: FDA-Public Use
  Company Number: 05H-153-0302014-00

PATIENT
  Age: 37 Year
  Sex: Female
  Weight: 69.4 kg

DRUGS (7)
  1. BUPIVACAINE HYDROCHLORIDE 0.25% INJECTION (BUPIVACAINE HYDROCHLORIDE I [Suspect]
     Indication: EPIDURAL ANAESTHESIA
     Dosage: SEE IMAGE
     Route: 008
  2. MORPHINE SULFATE INJ [Suspect]
     Indication: EPIDURAL ANAESTHESIA
     Dosage: SEE IMAGE
     Route: 008
  3. 10% POVIDONE-IODINE ALCOHOLIC SOLUTION (POVIDONE-IODINE) [Concomitant]
  4. 75% ALCOHOL (ETHANOL) [Concomitant]
  5. 0.5% BUPIVACAINE [Concomitant]
  6. 2% LIDOCAINE WITH 1:200,000 EPINEPHRINE (OCTOCAINE WITH EPINEPHRINE) [Concomitant]
  7. 0.25% BUPIVACAINE (BUPIVACAINE) [Concomitant]

REACTIONS (4)
  - BACTERIAL INFECTION [None]
  - CATHETER RELATED INFECTION [None]
  - EXTRADURAL ABSCESS [None]
  - OSTEOMYELITIS [None]
